FAERS Safety Report 24994622 (Version 2)
Quarter: 2025Q1

REPORT INFORMATION
  Report Type: Spontaneous
  Country: JP (occurrence: JP)
  Receive Date: 20250221
  Receipt Date: 20250307
  Transmission Date: 20250408
  Serious: Yes (Death, Other)
  Sender: MERCK SHARP & DOHME LLC
  Company Number: JP-009507513-2256932

PATIENT
  Age: 55 Year
  Sex: Male

DRUGS (3)
  1. KEYTRUDA [Suspect]
     Active Substance: PEMBROLIZUMAB
     Indication: Non-small cell lung cancer stage III
     Route: 041
     Dates: start: 20241112, end: 20241112
  2. CISPLATIN [Concomitant]
     Active Substance: CISPLATIN
     Indication: Non-small cell lung cancer
     Route: 041
     Dates: start: 20241112, end: 20241112
  3. GEMCITABINE [Concomitant]
     Active Substance: GEMCITABINE
     Indication: Non-small cell lung cancer
     Route: 041
     Dates: start: 20241112, end: 20241112

REACTIONS (2)
  - Acute lung injury [Fatal]
  - Acute respiratory distress syndrome [Unknown]

NARRATIVE: CASE EVENT DATE: 20250101
